FAERS Safety Report 10068258 (Version 2)
Quarter: 2014Q2

REPORT INFORMATION
  Report Type: Spontaneous
  Country: US (occurrence: US)
  Receive Date: 20140409
  Receipt Date: 20140528
  Transmission Date: 20141212
  Serious: No
  Sender: FDA-Public Use
  Company Number: US-PFIZER INC-2014096339

PATIENT
  Age: 36 Year
  Sex: Female

DRUGS (4)
  1. MEDROL [Suspect]
     Dosage: UNK
  2. CONCERTA [Suspect]
     Indication: ATTENTION DEFICIT/HYPERACTIVITY DISORDER
     Dosage: 36 MG, UNK
  3. CONCERTA [Suspect]
     Indication: MEMORY IMPAIRMENT
  4. CONCERTA [Suspect]
     Indication: ANXIETY

REACTIONS (3)
  - Prehypertension [Unknown]
  - Migraine [Unknown]
  - Musculoskeletal disorder [Unknown]
